FAERS Safety Report 7632816-2 (Version None)
Quarter: 2011Q3

REPORT INFORMATION
  Report Type: 
  Country: None (occurrence: None)
  Receive Date: 20110715
  Receipt Date: 20110705
  Transmission Date: 20111222
  Serious: No
  Sender: FDA-Public Use
  Company Number: 2011-00922

PATIENT
  Sex: Female

DRUGS (2)
  1. .ZICAM EXTREME CONGESTION RELIEF [Suspect]
     Dosage: BID 1ST DAY/1X DAY-2 DAYS
     Dates: start: 20030701, end: 20040701
  2. .ZICAM EXTREME CONGESTION RELIEF [Suspect]
     Dosage: BID 1ST DAY/1X DAY-2 DAYS
     Dates: start: 20010701, end: 20020702

REACTIONS (2)
  - ANOSMIA [None]
  - AGEUSIA [None]
